FAERS Safety Report 10058552 (Version 4)
Quarter: 2014Q2

REPORT INFORMATION
  Report Type: Other
  Country: JP (occurrence: JP)
  Receive Date: 20140404
  Receipt Date: 20140508
  Transmission Date: 20141212
  Serious: Yes (Other)
  Sender: FDA-Public Use
  Company Number: JP-ASTELLAS-2014JP002741

PATIENT
  Age: 81 Year
  Sex: Female
  Weight: 34 kg

DRUGS (6)
  1. BETANIS [Suspect]
     Indication: HYPERTONIC BLADDER
     Route: 048
     Dates: start: 20140227, end: 20140314
  2. TRYPTANOL                          /00002202/ [Concomitant]
     Indication: PRODUCT USED FOR UNKNOWN INDICATION
     Dosage: UNK UNK, UNKNOWN FREQ.
     Route: 048
     Dates: start: 201311, end: 20140314
  3. MAGMITT [Concomitant]
     Indication: PRODUCT USED FOR UNKNOWN INDICATION
     Dosage: UNK UNK, UNKNOWN FREQ.
     Route: 048
     Dates: start: 201212
  4. SENNOSIDE                          /00571901/ [Concomitant]
     Indication: PRODUCT USED FOR UNKNOWN INDICATION
     Dosage: UNK UNK, UNKNOWN FREQ.
     Route: 048
     Dates: start: 2012
  5. DUROTEP [Concomitant]
     Indication: PRODUCT USED FOR UNKNOWN INDICATION
     Dosage: UNK UNK, UNKNOWN FREQ.
     Route: 062
     Dates: start: 201211
  6. ALEISON [Concomitant]
     Indication: RASH GENERALISED
     Route: 048
     Dates: start: 20140306

REACTIONS (3)
  - Neutrophil count decreased [Recovering/Resolving]
  - Rash generalised [Recovered/Resolved]
  - Eosinophil count increased [Recovered/Resolved]
